FAERS Safety Report 6977909-8 (Version None)
Quarter: 2010Q3

REPORT INFORMATION
  Report Type: 
  Country: None (occurrence: None)
  Receive Date: 20100913
  Receipt Date: 20100901
  Transmission Date: 20110219
  Serious: No
  Sender: FDA-Public Use
  Company Number: US-US-EMD SERONO, INC.-7014020

PATIENT
  Sex: Female
  Weight: 72 kg

DRUGS (5)
  1. REBIF [Suspect]
     Indication: MULTIPLE SCLEROSIS
     Route: 058
     Dates: start: 20050427, end: 20091201
  2. SYNTHROID [Concomitant]
     Indication: HYPOTHYROIDISM
  3. LISINOPRIL AND HYDROCHLOROTHIAZIDE [Concomitant]
     Indication: HYPERTENSION
  4. LIOTHYRONINE SODIUM [Concomitant]
     Indication: HYPOTHYROIDISM
  5. PROVIGIL [Concomitant]
     Indication: MULTIPLE SCLEROSIS
     Dates: end: 20100101

REACTIONS (4)
  - ACUTE PRERENAL FAILURE [None]
  - BREAST CANCER IN SITU [None]
  - INFLUENZA LIKE ILLNESS [None]
  - INJECTION SITE REACTION [None]
